FAERS Safety Report 5423899-9 (Version None)
Quarter: 2007Q3

REPORT INFORMATION
  Report Type: 
  Country: None (occurrence: None)
  Receive Date: 20070823
  Receipt Date: 20070809
  Transmission Date: 20080115
  Serious: Yes (Hospitalization)
  Sender: FDA-Public Use
  Company Number: IN-ELI_LILLY_AND_COMPANY-IN200708002202

PATIENT
  Sex: Male

DRUGS (4)
  1. HUMULIN R [Suspect]
     Indication: DIABETES MELLITUS
     Dosage: 20 UNITS EACH, THRICE DAILY
     Route: 058
     Dates: start: 20070801, end: 20070801
  2. HUMULIN R [Suspect]
     Dosage: 20 U, 3/D
  3. HUMULIN N [Suspect]
     Indication: DIABETES MELLITUS
     Dosage: 30 UNITS EACH, TWICE DAILY
     Route: 058
     Dates: start: 20070801, end: 20070801
  4. HUMULIN N [Suspect]
     Dosage: 30 MG, 2/D

REACTIONS (3)
  - ABSCESS [None]
  - DRUG INEFFECTIVE [None]
  - HYDROCELE [None]
